FAERS Safety Report 21570661 (Version 2)
Quarter: 2022Q4

REPORT INFORMATION
  Report Type: Report from Study
  Country: CA (occurrence: CA)
  Receive Date: 20221109
  Receipt Date: 20221114
  Transmission Date: 20230112
  Serious: Yes (Other)
  Sender: FDA-Public Use
  Company Number: CA-UCBSA-2022030364

PATIENT
  Age: 61 Year
  Sex: Female

DRUGS (3)
  1. ROTIGOTINE [Suspect]
     Active Substance: ROTIGOTINE
     Indication: Parkinson^s disease
     Dosage: UNK
     Route: 062
     Dates: start: 20220521, end: 2022
  2. ROTIGOTINE [Suspect]
     Active Substance: ROTIGOTINE
     Dosage: 2 MILLIGRAM, ONCE DAILY (QD)
     Route: 062
     Dates: start: 2022, end: 2022
  3. ROTIGOTINE [Suspect]
     Active Substance: ROTIGOTINE
     Dosage: 1 MILLIGRAM, ONCE DAILY (QD)
     Route: 062
     Dates: start: 2022, end: 20221008

REACTIONS (18)
  - Eye laser surgery [Recovering/Resolving]
  - Retinal tear [Recovering/Resolving]
  - Seizure [Recovering/Resolving]
  - Back pain [Recovering/Resolving]
  - Application site rash [Unknown]
  - Nausea [Unknown]
  - Dyspnoea [Recovered/Resolved]
  - Obsessive-compulsive disorder [Recovered/Resolved]
  - Abulia [Recovered/Resolved]
  - Anxiety [Recovering/Resolving]
  - Panic attack [Recovering/Resolving]
  - Confusional state [Recovering/Resolving]
  - Paranoia [Recovering/Resolving]
  - Insomnia [Recovering/Resolving]
  - Autophobia [Recovering/Resolving]
  - Obsessive thoughts [Recovering/Resolving]
  - Drug ineffective [Unknown]
  - Underdose [Unknown]

NARRATIVE: CASE EVENT DATE: 20220521
